FAERS Safety Report 23410578 (Version 1)
Quarter: 2024Q1

REPORT INFORMATION
  Report Type: Spontaneous
  Country: US (occurrence: None)
  Receive Date: 20240116
  Receipt Date: 20240116
  Transmission Date: 20240410
  Serious: Yes (Hospitalization)
  Sender: FDA-Public Use
  Company Number: None

PATIENT
  Sex: Female

DRUGS (12)
  1. TACROLIMUS [Suspect]
     Active Substance: TACROLIMUS
     Indication: Renal transplant
     Dosage: FREQUENCY : TWICE A DAY;?
     Route: 048
     Dates: start: 20240104
  2. ATENOLOL [Concomitant]
     Active Substance: ATENOLOL
  3. ATORVASTATIN [Concomitant]
     Active Substance: ATORVASTATIN
  4. AZATHIOPRINE [Concomitant]
     Active Substance: AZATHIOPRINE
  5. CALCIPOTRIEN CRE [Concomitant]
  6. CYCLOSPORINE [Concomitant]
     Active Substance: CYCLOSPORINE
  7. FLUOROURACIL CRE [Concomitant]
  8. FUROSEMIDE [Concomitant]
     Active Substance: FUROSEMIDE
  9. LOSARTAN POTASSIUM [Concomitant]
     Active Substance: LOSARTAN POTASSIUM
  10. MYCOPHENOLIC ACID [Concomitant]
     Active Substance: MYCOPHENOLIC ACID
  11. TRIAMCINOLON OIN [Concomitant]
  12. VITAMIN D [Concomitant]
     Active Substance: VITAMIN D NOS

REACTIONS (1)
  - Kidney transplant rejection [None]
